FAERS Safety Report 25481404 (Version 1)
Quarter: 2025Q2

REPORT INFORMATION
  Report Type: Spontaneous
  Country: US (occurrence: US)
  Receive Date: 20250626
  Receipt Date: 20250626
  Transmission Date: 20250717
  Serious: No
  Sender: ACCORD
  Company Number: US-Accord-466948

PATIENT
  Age: 80 Year
  Sex: Female

DRUGS (1)
  1. CLONAZEPAM [Suspect]
     Active Substance: CLONAZEPAM
     Indication: Product used for unknown indication

REACTIONS (4)
  - Dyspepsia [Unknown]
  - Nervousness [Unknown]
  - Product substitution issue [Unknown]
  - Drug ineffective [Unknown]
